FAERS Safety Report 5679838-9 (Version None)
Quarter: 2008Q1

REPORT INFORMATION
  Report Type: 
  Country: None (occurrence: None)
  Receive Date: 20080321
  Receipt Date: 20080310
  Transmission Date: 20080703
  Serious: Yes (Congenital Anomaly)
  Sender: FDA-Public Use
  Company Number: 2008-173552-NL

PATIENT
  Sex: Male

DRUGS (1)
  1. NUVARING [Suspect]

REACTIONS (4)
  - DRUG EXPOSURE DURING PREGNANCY [None]
  - FOETAL GROWTH RETARDATION [None]
  - PULMONARY ARTERY STENOSIS CONGENITAL [None]
  - SMALL FOR DATES BABY [None]
